FAERS Safety Report 6458083-3 (Version None)
Quarter: 2009Q4

REPORT INFORMATION
  Report Type: 
  Country: None (occurrence: None)
  Receive Date: 20091125
  Receipt Date: 20091116
  Transmission Date: 20100525
  Serious: Yes (Hospitalization, Other)
  Sender: FDA-Public Use
  Company Number: BR-ABBOTT-09P-020-0598941-00

PATIENT
  Sex: Female
  Weight: 63.5 kg

DRUGS (2)
  1. HUMIRA [Suspect]
     Indication: CROHN'S DISEASE
     Dosage: INDUCTION DOSE: 160MG-80MG-15DAYS
     Route: 058
     Dates: start: 20090509
  2. CALCIUM 600MG, VITAMIN 5 200UI [Concomitant]
     Indication: OSTEOPOROSIS PROPHYLAXIS
     Route: 048
     Dates: start: 20040101

REACTIONS (4)
  - CHOLELITHIASIS [None]
  - FATIGUE [None]
  - HIATUS HERNIA [None]
  - PYREXIA [None]
